FAERS Safety Report 7188643-6 (Version None)
Quarter: 2010Q4

REPORT INFORMATION
  Report Type: 
  Country: None (occurrence: None)
  Receive Date: 20101222
  Receipt Date: 20100723
  Transmission Date: 20110411
  Serious: No
  Sender: FDA-Public Use
  Company Number: US-AMGEN-KDL426581

PATIENT

DRUGS (1)
  1. ENBREL [Suspect]
     Indication: RHEUMATOID ARTHRITIS
     Dosage: 25 MG, QWK
     Route: 058
     Dates: start: 20031225

REACTIONS (5)
  - ARTHRALGIA [None]
  - BRONCHITIS [None]
  - NASAL DISCOMFORT [None]
  - RHINORRHOEA [None]
  - SENSATION OF PRESSURE [None]
